FAERS Safety Report 25908017 (Version 2)
Quarter: 2025Q4

REPORT INFORMATION
  Report Type: Report from Study
  Country: US (occurrence: US)
  Receive Date: 20251010
  Receipt Date: 20251107
  Transmission Date: 20260117
  Serious: Yes (Other)
  Sender: MALLINCKRODT
  Company Number: US-MALLINCKRODT-MNK202506307

PATIENT
  Age: 55 Year
  Sex: Female

DRUGS (1)
  1. CORTICOTROPIN [Suspect]
     Active Substance: CORTICOTROPIN
     Indication: Relapsing-remitting multiple sclerosis
     Dosage: UNKNOWN
     Route: 058
     Dates: start: 201205

REACTIONS (4)
  - Multiple sclerosis [Recovered/Resolved]
  - Foot operation [Recovering/Resolving]
  - Road traffic accident [Recovering/Resolving]
  - Injury [Recovering/Resolving]
